FAERS Safety Report 9603495 (Version 2)
Quarter: 2013Q4

REPORT INFORMATION
  Report Type: Spontaneous
  Country: FR (occurrence: FR)
  Receive Date: 20131007
  Receipt Date: 20131022
  Transmission Date: 20140711
  Serious: Yes (Life-Threatening)
  Sender: FDA-Public Use
  Company Number: FR-ABBVIE-13P-056-1153676-00

PATIENT
  Age: 64 Year
  Sex: Male
  Weight: 80 kg

DRUGS (1)
  1. HUMIRA [Suspect]
     Indication: CROHN^S DISEASE

REACTIONS (4)
  - Acute respiratory distress syndrome [Recovered/Resolved with Sequelae]
  - Renal failure [Recovered/Resolved with Sequelae]
  - Legionella infection [Recovered/Resolved with Sequelae]
  - Septic shock [Recovered/Resolved with Sequelae]
